FAERS Safety Report 5966216-8 (Version None)
Quarter: 2008Q4

REPORT INFORMATION
  Report Type: 
  Country: None (occurrence: None)
  Receive Date: 20081125
  Receipt Date: 20081113
  Transmission Date: 20090506
  Serious: Yes (Hospitalization, Other)
  Sender: FDA-Public Use
  Company Number: FR-ELI_LILLY_AND_COMPANY-FR200809002073

PATIENT
  Age: 66 Year
  Sex: Female
  Weight: 34 kg

DRUGS (8)
  1. ZYPREXA [Suspect]
     Dosage: 15 MG, DAILY (1/D)
     Route: 048
     Dates: start: 20080801, end: 20080101
  2. ZYPREXA [Suspect]
     Dosage: 5 MG, DAILY (1/D)
     Route: 048
     Dates: start: 20080101, end: 20080101
  3. ZYPREXA [Suspect]
     Dosage: 15 MG, DAILY (1/D)
     Route: 048
     Dates: start: 20080101, end: 20080907
  4. DEPAKOTE [Concomitant]
     Dosage: 750 MG, DAILY (1/D)
     Route: 048
  5. LEPTICUR [Concomitant]
     Dosage: 10 MG, DAILY (1/D)
     Route: 048
  6. LEPTICUR [Concomitant]
     Dosage: 2 D/F, UNK
  7. NORSET [Concomitant]
     Dosage: 7.5 MEQ, DAILY (1/D)
     Route: 048
  8. IMOVANE [Concomitant]
     Dosage: 3.5 MG, DAILY (1/D)
     Route: 048

REACTIONS (11)
  - ANXIETY [None]
  - BLOOD CREATINE PHOSPHOKINASE INCREASED [None]
  - DEHYDRATION [None]
  - DISORIENTATION [None]
  - EXTRAPYRAMIDAL DISORDER [None]
  - HALLUCINATION, VISUAL [None]
  - LUNG DISORDER [None]
  - RENAL FAILURE [None]
  - TACHYCARDIA [None]
  - TRANSAMINASES INCREASED [None]
  - URINARY TRACT INFECTION [None]
